FAERS Safety Report 6836522-3 (Version None)
Quarter: 2010Q3

REPORT INFORMATION
  Report Type: 
  Country: None (occurrence: None)
  Receive Date: 20100708
  Receipt Date: 20100623
  Transmission Date: 20110219
  Serious: Yes (Other)
  Sender: FDA-Public Use
  Company Number: RB-09624-2010

PATIENT
  Age: 30 Year
  Sex: Male

DRUGS (1)
  1. SUBOXONE [Suspect]
     Indication: DRUG DEPENDENCE
     Dosage: 8 MG DOSING DETAILS UNKNOWN, SUBLIGUAL
     Route: 060
     Dates: start: 20100301

REACTIONS (2)
  - ARTHROPOD BITE [None]
  - CONVULSION [None]
